FAERS Safety Report 24673625 (Version 1)
Quarter: 2024Q4

REPORT INFORMATION
  Report Type: Spontaneous
  Country: US (occurrence: US)
  Receive Date: 20241128
  Receipt Date: 20241128
  Transmission Date: 20250115
  Serious: Yes (Other)
  Sender: BRISTOL-MYERS SQUIBB COMPANY
  Company Number: US-BRISTOL-MYERS SQUIBB COMPANY-2024-184166

PATIENT
  Age: 36 Year
  Sex: Male

DRUGS (2)
  1. KENALOG [Suspect]
     Active Substance: TRIAMCINOLONE ACETONIDE
     Indication: Lumbar radiculopathy
     Dosage: FREQUENCY: UNAVAILABLE
     Route: 008
     Dates: start: 20230718
  2. LIDOCAINE [Concomitant]
     Active Substance: LIDOCAINE
     Indication: Product used for unknown indication

REACTIONS (16)
  - Arachnoiditis [Unknown]
  - Vision blurred [Not Recovered/Not Resolved]
  - Vitreous floaters [Unknown]
  - Musculoskeletal stiffness [Not Recovered/Not Resolved]
  - Paraesthesia [Unknown]
  - Muscular weakness [Unknown]
  - Limb discomfort [Unknown]
  - Muscle fatigue [Unknown]
  - Hypoaesthesia [Unknown]
  - Gait disturbance [Unknown]
  - Muscle atrophy [Unknown]
  - Muscle spasms [Unknown]
  - Coccydynia [Unknown]
  - Sacral pain [Unknown]
  - Injection site pain [Not Recovered/Not Resolved]
  - Off label use [Unknown]

NARRATIVE: CASE EVENT DATE: 20230718
